FAERS Safety Report 25813869 (Version 6)
Quarter: 2025Q4

REPORT INFORMATION
  Report Type: Spontaneous
  Country: US (occurrence: US)
  Receive Date: 20250917
  Receipt Date: 20251130
  Transmission Date: 20260117
  Serious: No
  Sender: TRAVERE THERAPEUTICS
  Company Number: US-TRAVERE-2025TVT01178

PATIENT
  Age: 30 Year
  Sex: Male

DRUGS (3)
  1. FILSPARI [Suspect]
     Active Substance: SPARSENTAN
     Indication: Haematuria
     Route: 048
     Dates: start: 20250712
  2. FILSPARI [Suspect]
     Active Substance: SPARSENTAN
     Route: 048
     Dates: start: 20250723
  3. FILSPARI [Suspect]
     Active Substance: SPARSENTAN
     Dosage: 400 MG TABLET CUTTING IN HALF
     Route: 048

REACTIONS (9)
  - Fatigue [Recovered/Resolved]
  - Orthostatic hypotension [None]
  - Fluid retention [Unknown]
  - Abdominal distension [Unknown]
  - Thirst [Unknown]
  - Dizziness postural [None]
  - Hypotension [None]
  - Product use in unapproved indication [Unknown]
  - Off label use [Unknown]

NARRATIVE: CASE EVENT DATE: 20250712
